FAERS Safety Report 6634222-6 (Version None)
Quarter: 2010Q1

REPORT INFORMATION
  Report Type: 
  Country: None (occurrence: None)
  Receive Date: 20100315
  Receipt Date: 20100309
  Transmission Date: 20100710
  Serious: Yes (Death, Hospitalization)
  Sender: FDA-Public Use
  Company Number: DE-B.I. PHARMACEUTICALS,INC./RIDGEFIELD-2010-DE-01560DE

PATIENT
  Sex: Male

DRUGS (17)
  1. SPIRIVA [Suspect]
     Indication: CHRONIC OBSTRUCTIVE PULMONARY DISEASE
     Dosage: 18 MCG
     Route: 055
     Dates: start: 20070803
  2. ATROVENT [Suspect]
     Indication: PULMONARY FIBROSIS
     Dosage: 1-1-1-1
     Route: 055
     Dates: start: 20070711, end: 20070802
  3. NEXIUM [Suspect]
     Indication: PROPHYLAXIS
     Dosage: 20 MG
     Route: 048
     Dates: start: 20070703, end: 20070802
  4. MELPERON [Suspect]
     Indication: SEDATION
     Dosage: 5 ML
     Route: 048
     Dates: start: 20070711, end: 20070802
  5. AMPHOTERICIN B [Suspect]
     Indication: CANDIDIASIS
     Dosage: 4X1 ML
     Route: 048
     Dates: start: 20070717, end: 20070802
  6. AMPHOTERICIN B [Suspect]
     Dosage: 4X1 ML
     Route: 048
     Dates: start: 20070811
  7. SULTANOL [Suspect]
     Indication: PULMONARY FIBROSIS
     Dosage: 1-1-1-1. A.R
     Dates: start: 20070711, end: 20070802
  8. DECORTIN [Suspect]
     Indication: PULMONARY FIBROSIS
     Dosage: 1-0-0    1-0-1/2
     Route: 048
     Dates: start: 20070707
  9. MCP [Suspect]
     Indication: NAUSEA
     Dosage: 10 MG
     Route: 048
     Dates: start: 20070726, end: 20070727
  10. MCP [Suspect]
     Dosage: 10 MG
     Route: 048
     Dates: start: 20070730, end: 20070802
  11. DIFLUCAN [Suspect]
     Indication: STOMATITIS
     Dosage: 200 MG
     Route: 048
     Dates: start: 20070730, end: 20070802
  12. FLUCONAZOLE [Suspect]
     Indication: CANDIDIASIS
     Dosage: 200 MG
     Route: 048
     Dates: start: 20070803, end: 20070811
  13. MARCUMAR [Suspect]
     Indication: THROMBOSIS PROPHYLAXIS
     Route: 048
     Dates: start: 20070703
  14. OMEPRAZOLE [Suspect]
     Indication: PROPHYLAXIS
     Route: 048
     Dates: start: 20070703
  15. TAVANIC 500 MG [Suspect]
     Indication: PNEUMONIA
     Dosage: 500 MG
     Route: 048
     Dates: start: 20070730, end: 20070802
  16. IDEOS KAUTABLETTEN [Concomitant]
     Indication: OSTEOPOROSIS PROPHYLAXIS
     Dosage: 1-0-1
     Route: 048
     Dates: start: 20070703
  17. NACL INFLSG [Concomitant]
     Indication: VOLUME BLOOD
     Route: 042
     Dates: start: 20070725, end: 20070802

REACTIONS (17)
  - ANAL EROSION [None]
  - BLISTER [None]
  - CITROBACTER INFECTION [None]
  - GENITAL EROSION [None]
  - HAEMOPHILUS INFECTION [None]
  - LIP EROSION [None]
  - NIKOLSKY'S SIGN [None]
  - OCULAR HYPERAEMIA [None]
  - ORAL MUCOSA EROSION [None]
  - PNEUMOCYSTIS JIROVECI PNEUMONIA [None]
  - PNEUMONIA [None]
  - PNEUMONIA ESCHERICHIA [None]
  - PRURITUS [None]
  - PYREXIA [None]
  - RASH GENERALISED [None]
  - RASH MACULAR [None]
  - TOXIC EPIDERMAL NECROLYSIS [None]
